FAERS Safety Report 14153861 (Version 1)
Quarter: 2017Q4

REPORT INFORMATION
  Report Type: Spontaneous
  Country: DE (occurrence: DE)
  Receive Date: 20171102
  Receipt Date: 20171102
  Transmission Date: 20180321
  Serious: Yes (Other)
  Sender: FDA-Public Use
  Company Number: DE-PURDUE PHARMA-GBR-2017-0050280

PATIENT

DRUGS (1)
  1. NON-PMN BUPRENORPHINE [Suspect]
     Active Substance: BUPRENORPHINE
     Indication: POSTOPERATIVE ANALGESIA
     Dosage: 0.23 MG, DAILY
     Route: 037

REACTIONS (1)
  - Device breakage [Recovered/Resolved]
